FAERS Safety Report 7276519-5 (Version None)
Quarter: 2011Q1

REPORT INFORMATION
  Report Type: 
  Country: None (occurrence: None)
  Receive Date: 20110204
  Receipt Date: 20110127
  Transmission Date: 20110831
  Serious: Yes (Hospitalization)
  Sender: FDA-Public Use
  Company Number: IE-MEDIMMUNE-MEDI-0012151

PATIENT
  Weight: 7.34 kg

DRUGS (7)
  1. SYNAGIS [Suspect]
     Route: 030
     Dates: start: 20101117, end: 20101117
  2. ALBUTEROL [Concomitant]
  3. GAVISCON [Concomitant]
  4. ALFACALCIDOL [Concomitant]
  5. FERROUS SULFATE TAB [Concomitant]
  6. IPRATROPIUM BROMIDE [Concomitant]
  7. OMEPRAZOLE [Concomitant]

REACTIONS (4)
  - COUGH [None]
  - BODY TEMPERATURE [None]
  - NASOPHARYNGITIS [None]
  - PYREXIA [None]
